FAERS Safety Report 24714385 (Version 5)
Quarter: 2025Q3

REPORT INFORMATION
  Report Type: Report from Study
  Country: CA (occurrence: CA)
  Receive Date: 20241209
  Receipt Date: 20250810
  Transmission Date: 20251021
  Serious: Yes (Life-Threatening, Hospitalization, Other)
  Sender: ALEXION PHARMACEUTICALS
  Company Number: CA-AstraZeneca-CH-00763135A

PATIENT
  Sex: Female

DRUGS (3)
  1. ANIFROLUMAB [Suspect]
     Active Substance: ANIFROLUMAB
     Indication: Autoantibody positive
     Dosage: 300 MILLIGRAM, Q4W
     Dates: start: 20241010, end: 20241223
  2. ANIFROLUMAB [Suspect]
     Active Substance: ANIFROLUMAB
     Indication: Systemic lupus erythematosus
  3. SHINGRIX [Concomitant]
     Active Substance: RECOMBINANT VARICELLA ZOSTER VIRUS (VZV) GLYCOPROTEIN E
     Route: 065

REACTIONS (8)
  - Near death experience [Unknown]
  - Back pain [Unknown]
  - Feeling hot [Unknown]
  - Cold sweat [Unknown]
  - Nephrolithiasis [Unknown]
  - Urinary tract obstruction [Unknown]
  - Sepsis [Recovered/Resolved]
  - Hospitalisation [Unknown]
